FAERS Safety Report 14671456 (Version 3)
Quarter: 2018Q1

REPORT INFORMATION
  Report Type: Spontaneous
  Country: IT (occurrence: IT)
  Receive Date: 20180323
  Receipt Date: 20180328
  Transmission Date: 20180509
  Serious: Yes (Death)
  Sender: FDA-Public Use
  Company Number: IT-B.I. PHARMACEUTICALS,INC./RIDGEFIELD-2018-12-001088

PATIENT
  Age: 85 Year
  Sex: Female

DRUGS (5)
  1. SIMVASTATIN. [Concomitant]
     Active Substance: SIMVASTATIN
     Indication: ISCHAEMIC STROKE
     Route: 048
  2. CONGESCOR [Concomitant]
     Active Substance: BISOPROLOL
     Indication: ISCHAEMIC STROKE
     Route: 048
  3. PRADAXA [Suspect]
     Active Substance: DABIGATRAN ETEXILATE MESYLATE
     Indication: ATRIAL FIBRILLATION
     Route: 048
     Dates: start: 20150630, end: 20180303
  4. NORVASC [Concomitant]
     Active Substance: AMLODIPINE BESYLATE
     Indication: ISCHAEMIC STROKE
     Route: 048
  5. TRIATEC [Concomitant]
     Active Substance: RAMIPRIL
     Indication: ISCHAEMIC STROKE
     Route: 048

REACTIONS (4)
  - Subarachnoid haemorrhage [Fatal]
  - Coma [Fatal]
  - Pupils unequal [Fatal]
  - Bradycardia [Fatal]

NARRATIVE: CASE EVENT DATE: 20180304
